FAERS Safety Report 19013027 (Version 1)
Quarter: 2021Q1

REPORT INFORMATION
  Report Type: Spontaneous
  Country: US (occurrence: US)
  Receive Date: 20210316
  Receipt Date: 20210316
  Transmission Date: 20210420
  Serious: Yes (Hospitalization)
  Sender: FDA-Public Use
  Company Number: None

PATIENT
  Age: 62 Year
  Sex: Female

DRUGS (22)
  1. BENLYSTA [Suspect]
     Active Substance: BELIMUMAB
     Indication: SYSTEMIC LUPUS ERYTHEMATOSUS
     Dosage: OTHER FREQUENCY:QWK;?
     Route: 058
     Dates: start: 20191018
  2. AMILORIDE [Concomitant]
     Active Substance: AMILORIDE
  3. BUPROPION. [Concomitant]
     Active Substance: BUPROPION
  4. OXYCODONE [Concomitant]
     Active Substance: OXYCODONE
  5. RELISTOR [Concomitant]
     Active Substance: METHYLNALTREXONE BROMIDE
  6. GABAPENTIN. [Concomitant]
     Active Substance: GABAPENTIN
  7. CLONAZEP [Concomitant]
  8. HYDROXYCHLOR [Concomitant]
     Active Substance: HYDROXYCHLOROQUINE
  9. NITROFURANTN [Concomitant]
     Active Substance: NITROFURANTOIN
  10. LEFLUNOMIDE. [Concomitant]
     Active Substance: LEFLUNOMIDE
  11. NABUMETONE. [Concomitant]
     Active Substance: NABUMETONE
  12. ROSUVASTATIN. [Concomitant]
     Active Substance: ROSUVASTATIN
  13. SUMATRIPTAN. [Concomitant]
     Active Substance: SUMATRIPTAN
  14. ALBUTEROL. [Concomitant]
     Active Substance: ALBUTEROL
  15. DICYCLOMINE [Concomitant]
     Active Substance: DICYCLOMINE HYDROCHLORIDE
  16. ADZENYS XR [Concomitant]
  17. BREO ELLIPTA INHA [Concomitant]
  18. LEVOTHYROXINE. [Concomitant]
     Active Substance: LEVOTHYROXINE
  19. ONDANSETRON [Concomitant]
     Active Substance: ONDANSETRON
  20. PANTOPRAZOLE [Concomitant]
     Active Substance: PANTOPRAZOLE
  21. PREDNISONE. [Concomitant]
     Active Substance: PREDNISONE
  22. SLOW MAG [Concomitant]
     Active Substance: MAGNESIUM CHLORIDE

REACTIONS (1)
  - Therapy interrupted [None]

NARRATIVE: CASE EVENT DATE: 20210101
